FAERS Safety Report 5815825-5 (Version None)
Quarter: 2008Q3

REPORT INFORMATION
  Report Type: 
  Country: None (occurrence: None)
  Receive Date: 20080721
  Receipt Date: 20080710
  Transmission Date: 20090109
  Serious: Yes (Other)
  Sender: FDA-Public Use
  Company Number: US-JNJFOC-20080703182

PATIENT
  Age: 16 Year
  Sex: Male
  Weight: 58.97 kg

DRUGS (6)
  1. TOPAMAX [Suspect]
     Indication: MIGRAINE PROPHYLAXIS
     Route: 048
  2. ELAVIL [Concomitant]
     Indication: MIGRAINE
     Route: 048
  3. ZOLOFT [Concomitant]
     Indication: ANXIETY
     Route: 048
  4. ZYRTEC [Concomitant]
     Indication: SINUS DISORDER
     Route: 048
  5. IMITREX [Concomitant]
     Indication: MIGRAINE
     Route: 048
  6. NAPROSYN [Concomitant]
     Indication: MIGRAINE
     Route: 048

REACTIONS (1)
  - OSTEOPENIA [None]
